FAERS Safety Report 6248009-X (Version None)
Quarter: 2009Q2

REPORT INFORMATION
  Report Type: 
  Country: None (occurrence: None)
  Receive Date: 20090626
  Receipt Date: 20090617
  Transmission Date: 20091009
  Serious: Yes (Hospitalization, Other)
  Sender: FDA-Public Use
  Company Number: US-GENENTECH-285253

PATIENT
  Sex: Male
  Weight: 21.4 kg

DRUGS (2)
  1. SOMATROPIN [Suspect]
     Indication: ASTROCYTOMA
     Dosage: 0.5 MG, UNK
     Route: 058
     Dates: start: 20081210
  2. OMNICEF [Concomitant]
     Indication: PHARYNGITIS STREPTOCOCCAL
     Dosage: UNK
     Dates: start: 20090607

REACTIONS (1)
  - CONVULSION [None]
